FAERS Safety Report 26128187 (Version 1)
Quarter: 2025Q4

REPORT INFORMATION
  Report Type: Spontaneous
  Country: CA (occurrence: CA)
  Receive Date: 20251207
  Receipt Date: 20251207
  Transmission Date: 20260118
  Serious: Yes (Other)
  Sender: AUROBINDO
  Company Number: CA-AUROBINDO-AUR-APL-2025-061211

PATIENT

DRUGS (8)
  1. IRINOTECAN [Suspect]
     Active Substance: IRINOTECAN
     Indication: Polypoidal choroidal vasculopathy
     Dosage: UNK
  2. AFLIBERCEPT [Suspect]
     Active Substance: AFLIBERCEPT
     Indication: Polypoidal choroidal vasculopathy
     Dosage: UNK
  3. BEVACIZUMAB [Suspect]
     Active Substance: BEVACIZUMAB
     Indication: Polypoidal choroidal vasculopathy
     Dosage: UNK
  4. FLUOROURACIL [Suspect]
     Active Substance: FLUOROURACIL
     Indication: Polypoidal choroidal vasculopathy
     Dosage: UNK
  5. LEUCOVORIN CALCIUM [Suspect]
     Active Substance: LEUCOVORIN CALCIUM
     Indication: Polypoidal choroidal vasculopathy
     Dosage: UNK
  6. LUCENTIS [Suspect]
     Active Substance: RANIBIZUMAB
     Indication: Polypoidal choroidal vasculopathy
     Dosage: UNK
  7. LUCENTIS [Suspect]
     Active Substance: RANIBIZUMAB
     Indication: Polypoidal choroidal vasculopathy
     Dosage: UNK
  8. BROLUCIZUMAB [Suspect]
     Active Substance: BROLUCIZUMAB
     Indication: Polypoidal choroidal vasculopathy
     Dosage: UNK
     Route: 065

REACTIONS (3)
  - Subretinal fluid [Unknown]
  - Product use issue [Unknown]
  - Off label use [Unknown]
